FAERS Safety Report 8593141 (Version 2)
Quarter: 2013Q2

REPORT INFORMATION
  Report Type: Spontaneous
  Country: US (occurrence: US)
  Receive Date: 20120604
  Receipt Date: 20130617
  Transmission Date: 20140414
  Serious: Yes (Hospitalization, Disabling)
  Sender: FDA-Public Use
  Company Number: US-ASTRAZENECA-2012SE34783

PATIENT
  Age: 35 Year
  Sex: Female
  Weight: 63.5 kg

DRUGS (2)
  1. NEXIUM [Suspect]
     Indication: GASTRIC DISORDER
     Route: 048
  2. NEXIUM [Suspect]
     Indication: GASTRIC DISORDER
     Dosage: 1 TWICE A DAY
     Route: 048

REACTIONS (5)
  - Road traffic accident [Unknown]
  - Osteoporosis [Unknown]
  - Rib fracture [Unknown]
  - Jaw fracture [Unknown]
  - Arthritis [Unknown]
